FAERS Safety Report 6190096-1 (Version None)
Quarter: 2009Q2

REPORT INFORMATION
  Report Type: 
  Country: None (occurrence: None)
  Receive Date: 20090514
  Receipt Date: 20090504
  Transmission Date: 20091009
  Serious: Yes (Other)
  Sender: FDA-Public Use
  Company Number: PHHY2009BR15939

PATIENT
  Age: 45 Year
  Sex: Female

DRUGS (14)
  1. CLOZAPINE [Suspect]
     Indication: SCHIZOPHRENIA
     Dosage: 600MG/DAY
  2. VALPROIC ACID [Concomitant]
     Dosage: 2000MG/DAY
  3. VALPROIC ACID [Concomitant]
     Dosage: 1500 MG PER DAY
  4. VALPROIC ACID [Concomitant]
     Dosage: 1000 MG PER DAY
  5. LITHIUM CARBONATE [Concomitant]
     Dosage: 600MG DAILY
  6. LEVOMEPROMAZINE [Concomitant]
     Dosage: 400MG/DAY
  7. LEVOMEPROMAZINE [Concomitant]
     Dosage: 100 MG PER DAY
  8. LITHIUM CARBONATE [Concomitant]
     Dosage: 900 MG DAILY
  9. LITHIUM CARBONATE [Concomitant]
     Dosage: 1200 MG DAILY
  10. HALOPERIDOL [Concomitant]
     Dosage: 5 MG PER DAY
  11. CHLORPROMAZINE [Concomitant]
     Dosage: 500 MG DAILY
  12. CARBAMAZEPINE [Concomitant]
  13. RISPERIDONE [Concomitant]
  14. AMITRIPTLINE HYDROCHLORIDE TAB [Concomitant]
     Dosage: 50 MG PER DAY

REACTIONS (10)
  - AGGRESSION [None]
  - AMNESIA [None]
  - DRUG INEFFECTIVE [None]
  - EXTRAPYRAMIDAL DISORDER [None]
  - HISTRIONIC PERSONALITY DISORDER [None]
  - MENTAL DISORDER [None]
  - MOTOR DYSFUNCTION [None]
  - SALIVARY HYPERSECRETION [None]
  - URINARY INCONTINENCE [None]
  - VOMITING [None]
